FAERS Safety Report 21911972 (Version 1)
Quarter: 2023Q1

REPORT INFORMATION
  Report Type: Spontaneous
  Country: US (occurrence: US)
  Receive Date: 20230125
  Receipt Date: 20230125
  Transmission Date: 20230418
  Serious: No
  Sender: FDA-Public Use
  Company Number: US-ALLERGAN-2230666US

PATIENT

DRUGS (6)
  1. BOTOX [Suspect]
     Active Substance: ONABOTULINUMTOXINA
     Indication: Migraine
     Dosage: UNK, SINGLE
  2. LYRICA [Suspect]
     Active Substance: PREGABALIN
     Indication: Migraine
     Dosage: 100 MG, BID
  3. IBUPROFEN [Suspect]
     Active Substance: IBUPROFEN
     Indication: Migraine
     Dosage: 800 MG, QD
  4. PREDNISONE [Suspect]
     Active Substance: PREDNISONE
     Indication: Migraine
     Dosage: 5 MG, QD
  5. MAGNESIUM [Suspect]
     Active Substance: MAGNESIUM
  6. RIBOFLAVIN [Suspect]
     Active Substance: RIBOFLAVIN

REACTIONS (2)
  - Weight increased [Unknown]
  - Migraine [Unknown]
